FAERS Safety Report 7335490-8 (Version None)
Quarter: 2011Q1

REPORT INFORMATION
  Report Type: 
  Country: None (occurrence: None)
  Receive Date: 20110307
  Receipt Date: 20110223
  Transmission Date: 20110831
  Serious: Yes (Death, Life-Threatening)
  Sender: FDA-Public Use
  Company Number: GB-GENZYME-CLOF-1001460

PATIENT
  Sex: Female

DRUGS (34)
  1. DAUNOXOME [Suspect]
     Indication: ACUTE MYELOID LEUKAEMIA
     Dosage: 60 MG, QOD (DAY 1, 3 + 5)
     Route: 042
     Dates: start: 20110210, end: 20110214
  2. GENTAMYCIN-MP [Concomitant]
     Indication: ANTIBIOTIC THERAPY
     Dosage: 50 MG, QD
     Route: 042
     Dates: start: 20110209, end: 20110210
  3. METOCLOPRAMIDE HCL [Concomitant]
     Dosage: 1.6 MG, TID
     Route: 042
     Dates: start: 20110223
  4. PARACETAMOL [Concomitant]
     Indication: ANALGESIC THERAPY
     Dosage: 100 MG, PRN
     Route: 042
     Dates: start: 20110209
  5. DEXAMETHASONE [Concomitant]
     Indication: ANTIEMETIC SUPPORTIVE CARE
     Dosage: 1 MG, BID
     Route: 042
     Dates: start: 20110211, end: 20110215
  6. MEROPENEM [Concomitant]
     Dosage: 250 MG, TID
     Route: 042
     Dates: start: 20110225
  7. ORAMORPH SR [Concomitant]
     Indication: ANALGESIC THERAPY
     Dosage: 2 MG, PRN
     Route: 048
     Dates: start: 20110213
  8. PETHIDINE [Concomitant]
     Indication: ANALGESIC THERAPY
     Dosage: 20 MG, NA
     Route: 042
     Dates: start: 20110211
  9. PLATELETS [Concomitant]
     Dosage: 150 ML, ONCE
     Route: 042
     Dates: start: 20110221, end: 20110221
  10. AMBISOME [Concomitant]
     Indication: ANTIFUNGAL PROPHYLAXIS
     Dosage: UNK
     Route: 042
     Dates: start: 20110217
  11. TAZOCIN [Concomitant]
     Dosage: 900 MG, TID
     Route: 042
     Dates: start: 20110222, end: 20110225
  12. CHLORPHENAMINE [Concomitant]
     Indication: PRODUCT USED FOR UNKNOWN INDICATION
     Dosage: 2.5 MG, QS
     Route: 042
     Dates: start: 20110210
  13. TPN ELECTROLYTES IN PLASTIC CONTAINER [Concomitant]
     Indication: NUTRITIONAL SUPPORT
     Dosage: 1 NA, ONCE
     Route: 042
     Dates: start: 20110223
  14. VANCOMYCIN [Concomitant]
     Dosage: 150 MG, TID
     Route: 042
     Dates: start: 20110225
  15. PLATELETS [Concomitant]
     Dosage: 150 ML, ONCE
     Route: 042
     Dates: start: 20110221, end: 20110221
  16. FLUCONAZOLE [Concomitant]
     Indication: ANTIFUNGAL TREATMENT
     Dosage: 300 MG, ONCE
     Route: 042
     Dates: start: 20110224
  17. ALLOPURINOL [Concomitant]
     Indication: PROPHYLAXIS
     Dosage: 50 MG, TID
     Route: 048
     Dates: start: 20110209
  18. TAZOCIN [Concomitant]
     Indication: ANTIBIOTIC THERAPY
     Dosage: 900 MG, TID
     Route: 042
     Dates: start: 20110209, end: 20110211
  19. RED BLOOD CELLS [Concomitant]
     Dosage: 150 ML, ONCE
     Route: 042
     Dates: start: 20110221, end: 20110221
  20. RED BLOOD CELLS [Concomitant]
     Dosage: 150 ML, ONCE
     Route: 042
     Dates: start: 20110221, end: 20110221
  21. VANCOMYCIN [Concomitant]
     Indication: ANTIBIOTIC THERAPY
     Dosage: 150 MG, TID
     Route: 042
     Dates: start: 20110210
  22. ONDANSETRON [Concomitant]
     Indication: ANTIEMETIC SUPPORTIVE CARE
     Dosage: 1.5 MG, TID
     Route: 042
     Dates: start: 20110210, end: 20110218
  23. METOCLOPRAMIDE HCL [Concomitant]
     Indication: ANTIEMETIC SUPPORTIVE CARE
     Dosage: 1.6 MG, TID
     Route: 042
     Dates: start: 20110210
  24. MEROPENEM [Concomitant]
     Indication: ANTIBIOTIC THERAPY
     Dosage: 200 MG, TID
     Route: 042
     Dates: start: 20110211, end: 20110222
  25. CLOTRIMAZOLE [Concomitant]
     Indication: SKIN IRRITATION
     Dosage: 1 OTHER, TID
     Route: 061
     Dates: start: 20110213
  26. PARACETAMOL [Concomitant]
     Dosage: 75 MG, Q4HR
     Route: 042
     Dates: start: 20110214, end: 20110215
  27. PLATELETS [Concomitant]
     Dosage: 150 ML, ONCE
     Route: 042
     Dates: start: 20110214, end: 20110214
  28. COTRIM [Concomitant]
     Indication: PROPHYLAXIS
     Dosage: 240 MG, BID
     Route: 048
     Dates: start: 20110212
  29. RED BLOOD CELLS [Concomitant]
     Indication: HAEMOGLOBIN DECREASED
     Dosage: 150 ML, ONCE
     Route: 042
     Dates: start: 20110211, end: 20110211
  30. EVOLTRA [Suspect]
     Indication: ACUTE MYELOID LEUKAEMIA
     Dosage: 40 MG, QDX5
     Route: 042
     Dates: start: 20110210, end: 20110214
  31. GENTAMYCIN-MP [Concomitant]
     Dosage: 50 MG, ONCE
     Route: 042
     Dates: start: 20110222, end: 20110224
  32. DF118 [Concomitant]
     Indication: ANALGESIC THERAPY
     Dosage: 5 MG, NA
     Route: 042
     Dates: start: 20110214
  33. PARACETAMOL [Concomitant]
     Dosage: 100 MG, QS
     Route: 042
     Dates: start: 20110215
  34. PLATELETS [Concomitant]
     Indication: PLATELET COUNT DECREASED
     Dosage: 150 ML, ONCE
     Route: 042
     Dates: start: 20110208, end: 20110208

REACTIONS (4)
  - CHLOROMA [None]
  - HYDROCEPHALUS [None]
  - RESPIRATORY ARREST [None]
  - PYREXIA [None]
